FAERS Safety Report 4372849-5 (Version None)
Quarter: 2004Q2

REPORT INFORMATION
  Report Type: 
  Country: None (occurrence: None)
  Receive Date: 20040603
  Receipt Date: 20040520
  Transmission Date: 20050107
  Serious: Yes (Life-Threatening)
  Sender: FDA-Public Use
  Company Number: F01200401115

PATIENT
  Age: 71 Year
  Sex: Male

DRUGS (8)
  1. ELOXATIN [Suspect]
     Indication: PANCREATIC CARCINOMA
     Dosage: 150 MG ON D1 AND D15
     Route: 042
     Dates: start: 20040415, end: 20040415
  2. FLUOROURACIL [Suspect]
     Dosage: 900 MG ON D1 AND D15
     Route: 042
     Dates: start: 20040401, end: 20040401
  3. LEUCOVORIN CALCIUM [Suspect]
     Dosage: 50 MG ON D1 AND D15
     Route: 042
     Dates: start: 20040401, end: 20040401
  4. CARDIZEM CD [Concomitant]
  5. LIPITOR [Concomitant]
  6. LOSEC (OMEPRAZOLE) [Concomitant]
  7. DEXAMETHASONE [Concomitant]
  8. ONDANSETRON [Concomitant]

REACTIONS (10)
  - ALANINE AMINOTRANSFERASE INCREASED [None]
  - ASPARTATE AMINOTRANSFERASE INCREASED [None]
  - BLOOD ALKALINE PHOSPHATASE INCREASED [None]
  - BLOOD PRESSURE INCREASED [None]
  - HAEMOGLOBIN DECREASED [None]
  - HYPERSENSITIVITY [None]
  - INFUSION RELATED REACTION [None]
  - LOSS OF CONSCIOUSNESS [None]
  - PLATELET COUNT DECREASED [None]
  - URINARY INCONTINENCE [None]
